FAERS Safety Report 6397945-2 (Version None)
Quarter: 2009Q4

REPORT INFORMATION
  Report Type: 
  Country: None (occurrence: None)
  Receive Date: 20091006
  Receipt Date: 20090925
  Transmission Date: 20100525
  Serious: Yes (Other)
  Sender: FDA-Public Use
  Company Number: TRP_06287_2009

PATIENT
  Sex: Female
  Weight: 85.7298 kg

DRUGS (9)
  1. RIBASPHERE [Suspect]
     Indication: HEPATITIS C
     Dosage: 600 MG BID ORAL (600 MG BID ORAL)
     Route: 048
     Dates: start: 20090131, end: 20090610
  2. RIBASPHERE [Suspect]
     Indication: HEPATITIS C
     Dosage: 600 MG BID ORAL (600 MG BID ORAL)
     Route: 048
     Dates: start: 20090620
  3. INFERGEN [Suspect]
     Indication: HEPATITIS C
     Dosage: 15 UG QD SUBCUTANEOUS (15 UG QD, [0.2 ML, THEN 0.3 ML (9 MCG) QD, THEN 0.5 ML (15 MCG) QD] SUBCUTANE
     Route: 058
     Dates: start: 20090605, end: 20090610
  4. INFERGEN [Suspect]
     Indication: HEPATITIS C
     Dosage: 15 UG QD SUBCUTANEOUS (15 UG QD, [0.2 ML, THEN 0.3 ML (9 MCG) QD, THEN 0.5 ML (15 MCG) QD] SUBCUTANE
     Route: 058
     Dates: start: 20090620
  5. PEGASYS [Suspect]
     Indication: HEPATITIS C
     Dosage: DF
     Dates: start: 20090131, end: 20090610
  6. PEGASYS [Suspect]
     Indication: HEPATITIS C
     Dosage: DF
     Dates: start: 20090620
  7. EFFEXOR [Concomitant]
  8. IBUPROFEN [Concomitant]
  9. NORCAL [Concomitant]

REACTIONS (17)
  - AGITATION [None]
  - ALOPECIA [None]
  - AMMONIA INCREASED [None]
  - ASTHENIA [None]
  - CHILLS [None]
  - CONDITION AGGRAVATED [None]
  - CONFUSIONAL STATE [None]
  - DISTURBANCE IN ATTENTION [None]
  - FIBROMYALGIA [None]
  - HYPOAESTHESIA [None]
  - HYPOTHYROIDISM [None]
  - NAUSEA [None]
  - NERVOUSNESS [None]
  - PYREXIA [None]
  - RESTLESS LEGS SYNDROME [None]
  - SWOLLEN TONGUE [None]
  - WITHDRAWAL SYNDROME [None]
